FAERS Safety Report 20295183 (Version 2)
Quarter: 2022Q1

REPORT INFORMATION
  Report Type: Spontaneous
  Country: IL (occurrence: IL)
  Receive Date: 20220104
  Receipt Date: 20220203
  Transmission Date: 20220423
  Serious: Yes (Hospitalization)
  Sender: FDA-Public Use
  Company Number: IL-BIOGEN-2022BI01082960

PATIENT
  Sex: Female

DRUGS (1)
  1. TECFIDERA [Suspect]
     Active Substance: DIMETHYL FUMARATE
     Indication: Product used for unknown indication
     Route: 065

REACTIONS (4)
  - Multiple sclerosis relapse [Unknown]
  - Gamma-glutamyltransferase increased [Unknown]
  - Lymphocytosis [Unknown]
  - Alanine aminotransferase increased [Unknown]
